FAERS Safety Report 7558043-5 (Version None)
Quarter: 2011Q2

REPORT INFORMATION
  Report Type: 
  Country: None (occurrence: None)
  Receive Date: 20110620
  Receipt Date: 20110610
  Transmission Date: 20111010
  Serious: Yes (Hospitalization)
  Sender: FDA-Public Use
  Company Number: PHHY2011FR39805

PATIENT
  Sex: Female

DRUGS (4)
  1. CORTICOSTEROIDS [Suspect]
  2. ARAVA [Suspect]
     Indication: RHEUMATOID ARTHRITIS
  3. METHOTREXATE [Suspect]
  4. HUMIRA [Suspect]

REACTIONS (18)
  - LYMPHADENOPATHY [None]
  - RETROPERITONEAL LYMPHADENOPATHY [None]
  - DYSGEUSIA [None]
  - LUNG NEOPLASM [None]
  - NERVOUS SYSTEM DISORDER [None]
  - WEIGHT DECREASED [None]
  - PNEUMOCYSTIS JIROVECI PNEUMONIA [None]
  - LYMPHOPENIA [None]
  - NORMOCHROMIC NORMOCYTIC ANAEMIA [None]
  - GENERAL PHYSICAL HEALTH DETERIORATION [None]
  - PYREXIA [None]
  - HYPOAESTHESIA FACIAL [None]
  - DISSEMINATED TUBERCULOSIS [None]
  - GRANULOMA [None]
  - CENTRAL NERVOUS SYSTEM LESION [None]
  - HEMIPARESIS [None]
  - DYSPNOEA [None]
  - MYCOBACTERIUM TEST POSITIVE [None]
